FAERS Safety Report 18421951 (Version 1)
Quarter: 2020Q4

REPORT INFORMATION
  Report Type: Spontaneous
  Country: US (occurrence: US)
  Receive Date: 20201023
  Receipt Date: 20201023
  Transmission Date: 20210114
  Serious: No
  Sender: FDA-Public Use
  Company Number: US-PFIZER INC-2020363469

PATIENT
  Age: 64 Year
  Sex: Female

DRUGS (2)
  1. SUTENT [Suspect]
     Active Substance: SUNITINIB MALATE
     Indication: THROMBOCYTOPENIA
     Dosage: 37.5 MG, CYCLIC (1 CAPSULE EVERY DAY; FOR TWO WEEKS ON, THEN ONE WEEK OFF)
  2. SUTENT [Suspect]
     Active Substance: SUNITINIB MALATE
     Indication: CHRONIC KIDNEY DISEASE

REACTIONS (4)
  - Rash [Unknown]
  - Off label use [Unknown]
  - Petechiae [Unknown]
  - Product use in unapproved indication [Unknown]
